FAERS Safety Report 9529503 (Version 1)
Quarter: 2013Q1

REPORT INFORMATION
  Report Type: Spontaneous
  Country: None (occurrence: None)
  Receive Date: 20130320
  Receipt Date: 20130320
  Transmission Date: 20140127
  Serious: Yes (Other)
  Sender: FDA-Public Use
  Company Number: EUS-2012-01012

PATIENT
  Sex: 0

DRUGS (1)
  1. ASPARAGINASE [Suspect]
     Indication: NON-HODGKIN^S LYMPHOMA
     Dosage: DAYS 1 TO 7 REPEATED EVERY 3 WEEKS FOR AT MOST 8 CYCLES

REACTIONS (2)
  - Hypersensitivity [None]
  - Hypersensitivity [None]
